FAERS Safety Report 15591861 (Version 1)
Quarter: 2018Q4

REPORT INFORMATION
  Report Type: Spontaneous
  Country: US (occurrence: US)
  Receive Date: 20181106
  Receipt Date: 20181106
  Transmission Date: 20190205
  Serious: No
  Sender: FDA-Public Use
  Company Number: US-PERRIGO-18US007607

PATIENT
  Age: 85 Year
  Sex: Female
  Weight: 45.35 kg

DRUGS (1)
  1. ESTRADIOL. [Suspect]
     Active Substance: ESTRADIOL
     Indication: CYSTITIS
     Dosage: 1 G, 3 TIMES WEEKLY
     Route: 067
     Dates: start: 20180525, end: 20180602

REACTIONS (1)
  - Vision blurred [Not Recovered/Not Resolved]

NARRATIVE: CASE EVENT DATE: 20180528
